FAERS Safety Report 20852749 (Version 1)
Quarter: 2022Q2

REPORT INFORMATION
  Report Type: Spontaneous
  Country: US (occurrence: None)
  Receive Date: 20220519
  Receipt Date: 20220519
  Transmission Date: 20220721
  Serious: Yes (Death, Hospitalization)
  Sender: FDA-Public Use
  Company Number: None

PATIENT
  Sex: Male
  Weight: 123.4 kg

DRUGS (4)
  1. MERCAPTOPURINE [Suspect]
     Active Substance: MERCAPTOPURINE
  2. METHOTREXATE [Concomitant]
  3. PREDNISONE [Concomitant]
     Active Substance: PREDNISONE
  4. VINCRISTINE SULFATE [Concomitant]
     Active Substance: VINCRISTINE SULFATE

REACTIONS (9)
  - Pneumonia [None]
  - Respiratory failure [None]
  - COVID-19 pneumonia [None]
  - Abdominal distension [None]
  - Nausea [None]
  - Vomiting [None]
  - Staphylococcal sepsis [None]
  - Pneumothorax [None]
  - Cardio-respiratory arrest [None]

NARRATIVE: CASE EVENT DATE: 20220113
